FAERS Safety Report 8401789-7 (Version None)
Quarter: 2012Q2

REPORT INFORMATION
  Report Type: 
  Country: None (occurrence: None)
  Receive Date: 20120529
  Receipt Date: 19910325
  Transmission Date: 20120825
  Serious: Yes (Other)
  Sender: FDA-Public Use
  Company Number: 003812

PATIENT
  Age: 81 Year
  Sex: Female

DRUGS (11)
  1. TOCOPHEROL NICOTINATE (TOCOPHEROL NICOTINATE) [Concomitant]
  2. BETAHISTINE MESILATE (BETAHISTINE MESILATE) [Concomitant]
  3. PLETAL [Suspect]
     Dosage: 300 MG MILLIGRAM(S), DAILY DOSE, ORAL
     Route: 048
     Dates: start: 19910123, end: 19910215
  4. CAPTOPRIL [Concomitant]
  5. DOMEPERIDONE (DOMEPERIDONE) [Concomitant]
  6. ASCORBIC ACID [Concomitant]
  7. METOCLOPRAMIDE [Concomitant]
  8. NIFEDIPINE [Concomitant]
  9. MAINTENANCE MEDIUM (MAINTENANCE MEDIUM) [Concomitant]
  10. THIAMINE DISULIDE_B6_B12 COMBINED DRUG (THIAMINE DISULFIDE_B6_B12 COMB [Concomitant]
  11. IBUDILAST (IBUDILAST) [Suspect]
     Dosage: 30 MG MILLIGRAM(S)
     Dates: start: 19910123, end: 19910215

REACTIONS (8)
  - HEADACHE [None]
  - VOMITING [None]
  - BLOOD PRESSURE INADEQUATELY CONTROLLED [None]
  - DIZZINESS [None]
  - BEDRIDDEN [None]
  - NAUSEA [None]
  - APHAGIA [None]
  - BLOOD PRESSURE INCREASED [None]
